FAERS Safety Report 5370216-9 (Version None)
Quarter: 2007Q2

REPORT INFORMATION
  Report Type: 
  Country: None (occurrence: None)
  Receive Date: 20070614
  Receipt Date: 20070503
  Transmission Date: 20071010
  Serious: No
  Sender: FDA-Public Use
  Company Number: BDI-009481

PATIENT
  Age: 18 Year
  Sex: Female

DRUGS (10)
  1. MULTIHANCE [Suspect]
     Indication: HEADACHE
     Dosage: 15 ML ONCE SY
     Dates: start: 20070430, end: 20070430
  2. MULTIHANCE [Suspect]
     Indication: NUCLEAR MAGNETIC RESONANCE IMAGING BRAIN
     Dosage: 15 ML ONCE SY
     Dates: start: 20070430, end: 20070430
  3. AMITRIPTYLINE HCL [Concomitant]
  4. GABAPENTIN [Concomitant]
  5. MAXALT-MLT [Concomitant]
  6. ORTHO-NOVUM [Concomitant]
  7. TOPIRAMATE [Concomitant]
  8. ASCORBIC ACID [Concomitant]
  9. ZANTAC 150 [Concomitant]
  10. ZOLOFT [Concomitant]

REACTIONS (5)
  - DIZZINESS [None]
  - DYSPNOEA [None]
  - ERYTHEMA [None]
  - FLUSHING [None]
  - SENSATION OF FOREIGN BODY [None]
